FAERS Safety Report 9761659 (Version 1)
Quarter: 2013Q4

REPORT INFORMATION
  Report Type: Spontaneous
  Country: IT (occurrence: IT)
  Receive Date: 20131216
  Receipt Date: 20131216
  Transmission Date: 20140711
  Serious: Yes (Hospitalization)
  Sender: FDA-Public Use
  Company Number: IT-ACTAVIS-2013-22617

PATIENT
  Age: 43 Year
  Sex: Female
  Weight: 103 kg

DRUGS (2)
  1. PACLITAXEL ACTAVIS [Suspect]
     Indication: BREAST CANCER
     Dosage: 130 MG, 1/WEEK
     Route: 042
     Dates: start: 20131022, end: 20131022
  2. HERCEPTIN [Suspect]
     Indication: BREAST CANCER
     Dosage: 200 MG, 1/WEEK
     Route: 042
     Dates: start: 20130730, end: 20131022

REACTIONS (1)
  - Acute respiratory failure [Recovered/Resolved]
